FAERS Safety Report 4684436-X (Version None)
Quarter: 2005Q2

REPORT INFORMATION
  Report Type: 
  Country: None (occurrence: None)
  Receive Date: 20050531
  Receipt Date: 20040413
  Transmission Date: 20051028
  Serious: Yes (Other)
  Sender: FDA-Public Use
  Company Number: 200412842US

PATIENT

DRUGS (3)
  1. LOVENOX [Suspect]
     Indication: MYOCARDIAL INFARCTION
     Dosage: 80 MG Q12H
     Dates: start: 20040406, end: 20040411
  2. REOPRO [Concomitant]
  3. OTHER MEDICATIONS NOS [Concomitant]

REACTIONS (1)
  - THROMBOCYTOPENIA [None]
